FAERS Safety Report 16160395 (Version 1)
Quarter: 2019Q2

REPORT INFORMATION
  Report Type: Spontaneous
  Country: PT (occurrence: PT)
  Receive Date: 20190404
  Receipt Date: 20190404
  Transmission Date: 20190711
  Serious: Yes (Other)
  Sender: FDA-Public Use
  Company Number: PT-TEVA-2019-PT-1033143

PATIENT
  Age: 61 Year
  Sex: Female

DRUGS (2)
  1. CARBOPLATIN. [Concomitant]
     Active Substance: CARBOPLATIN
  2. PACLITAXEL AUROVITAS [Suspect]
     Active Substance: PACLITAXEL
     Dosage: 2ND CYCLE OF PACLITAXEL AND CARBOPLATIN
     Route: 042
     Dates: start: 20190312, end: 20190312

REACTIONS (3)
  - Feeling hot [Recovered/Resolved]
  - Palmar erythema [Recovered/Resolved]
  - Hypersensitivity [Recovered/Resolved]

NARRATIVE: CASE EVENT DATE: 20190312
